FAERS Safety Report 13211315 (Version 2)
Quarter: 2017Q1

REPORT INFORMATION
  Report Type: Spontaneous
  Country: US (occurrence: US)
  Receive Date: 20170210
  Receipt Date: 20170224
  Transmission Date: 20170428
  Serious: Yes (Other)
  Sender: FDA-Public Use
  Company Number: US-PFIZER INC-2017059111

PATIENT
  Age: 64 Year
  Sex: Male
  Weight: 81.63 kg

DRUGS (2)
  1. VENLAFAXINE HCL [Suspect]
     Active Substance: VENLAFAXINE HYDROCHLORIDE
     Indication: SUICIDAL IDEATION
     Dosage: 150 MG, 1X/DAY (MORNING )
     Route: 048
     Dates: start: 20170105, end: 20170112
  2. VENLAFAXINE HCL [Suspect]
     Active Substance: VENLAFAXINE HYDROCHLORIDE
     Indication: HOMICIDAL IDEATION

REACTIONS (9)
  - Drug hypersensitivity [Unknown]
  - Blood pressure increased [Recovered/Resolved]
  - Hyperhidrosis [Recovered/Resolved]
  - Peripheral swelling [Not Recovered/Not Resolved]
  - Limb mass [Recovering/Resolving]
  - Rash [Recovered/Resolved]
  - Erythema [Not Recovered/Not Resolved]
  - Hot flush [Recovered/Resolved]
  - Contusion [Not Recovered/Not Resolved]

NARRATIVE: CASE EVENT DATE: 201701
